FAERS Safety Report 7374781-1 (Version None)
Quarter: 2011Q1

REPORT INFORMATION
  Report Type: 
  Country: None (occurrence: None)
  Receive Date: 20110315
  Receipt Date: 20110304
  Transmission Date: 20110831
  Serious: Yes (Other)
  Sender: FDA-Public Use
  Company Number: 2010JP001659

PATIENT
  Age: 13 Year
  Sex: Female
  Weight: 39.4 kg

DRUGS (13)
  1. NEORAL [Concomitant]
  2. INCREMIN (FERRIC PYROPHOSPHATE) PER ORAL NOS [Concomitant]
  3. PREDNISOLONE [Concomitant]
  4. LEUPLIN (LEUPRORELIN ACETATE) INJECTION [Concomitant]
  5. ACTONEL (RISEDRONATE SODIUM) PER ORAL NOS [Concomitant]
  6. TACROLIMUS [Suspect]
     Indication: LUPUS NEPHRITIS
     Dosage: 4 MG, ORAL; 2 MG, ORAL; 2.5 MG, ORAL; 3 MG, ORAL; 3.5 MG, ORAL;
     Route: 048
     Dates: start: 20091016
  7. TACROLIMUS [Suspect]
     Indication: LUPUS NEPHRITIS
     Dosage: 4 MG, ORAL; 2 MG, ORAL; 2.5 MG, ORAL; 3 MG, ORAL; 3.5 MG, ORAL;
     Route: 048
     Dates: start: 20080311, end: 20080728
  8. TACROLIMUS [Suspect]
     Indication: LUPUS NEPHRITIS
     Dosage: 4 MG, ORAL; 2 MG, ORAL; 2.5 MG, ORAL; 3 MG, ORAL; 3.5 MG, ORAL;
     Route: 048
     Dates: start: 20071122, end: 20071227
  9. TACROLIMUS [Suspect]
     Indication: LUPUS NEPHRITIS
     Dosage: 4 MG, ORAL; 2 MG, ORAL; 2.5 MG, ORAL; 3 MG, ORAL; 3.5 MG, ORAL;
     Route: 048
     Dates: start: 20071228, end: 20080310
  10. TACROLIMUS [Suspect]
     Indication: LUPUS NEPHRITIS
     Dosage: 4 MG, ORAL; 2 MG, ORAL; 2.5 MG, ORAL; 3 MG, ORAL; 3.5 MG, ORAL;
     Route: 048
     Dates: start: 20080930, end: 20081114
  11. TACROLIMUS [Suspect]
     Indication: LUPUS NEPHRITIS
     Dosage: 4 MG, ORAL; 2 MG, ORAL; 2.5 MG, ORAL; 3 MG, ORAL; 3.5 MG, ORAL;
     Route: 048
     Dates: start: 20080729, end: 20080929
  12. TACROLIMUS [Suspect]
     Indication: LUPUS NEPHRITIS
     Dosage: 4 MG, ORAL; 2 MG, ORAL; 2.5 MG, ORAL; 3 MG, ORAL; 3.5 MG, ORAL;
     Route: 048
     Dates: start: 20081115, end: 20091015
  13. PERSANTIN (DIPYRIDAMOLE) PER ORAL NOS [Concomitant]

REACTIONS (5)
  - IRON DEFICIENCY ANAEMIA [None]
  - COUGH [None]
  - MENORRHAGIA [None]
  - LOSS OF CONSCIOUSNESS [None]
  - RASH [None]
